FAERS Safety Report 16241445 (Version 1)
Quarter: 2019Q2

REPORT INFORMATION
  Report Type: Spontaneous
  Country: FR (occurrence: FR)
  Receive Date: 20190426
  Receipt Date: 20190426
  Transmission Date: 20190711
  Serious: Yes (Life-Threatening, Other)
  Sender: FDA-Public Use
  Company Number: FR-AUROBINDO-AUR-APL-2019-022749

PATIENT

DRUGS (8)
  1. AMOXICILLIN. [Suspect]
     Active Substance: AMOXICILLIN
     Indication: BRONCHITIS
     Dosage: UNK
     Route: 048
     Dates: start: 201903, end: 20190320
  2. ATENOLOL. [Suspect]
     Active Substance: ATENOLOL
     Indication: HYPERTENSION
     Dosage: 100 MILLIGRAM, ONCE A DAY
     Route: 048
     Dates: end: 20190320
  3. PIVALONE (TIXOCORTOL PIVALATE) [Suspect]
     Active Substance: TIXOCORTOL PIVALATE
     Indication: BRONCHITIS
     Dosage: UNK
     Route: 045
     Dates: start: 201902, end: 20190320
  4. BRONCHOKOD [Suspect]
     Active Substance: CARBOCYSTEINE
     Indication: BRONCHITIS
     Dosage: 3 DOSAGE FORM, ONCE A DAY
     Route: 048
     Dates: start: 201902, end: 20190320
  5. RULID (ROXITHROMYCIN) [Suspect]
     Active Substance: ROXITHROMYCIN
     Indication: BRONCHITIS
     Dosage: 2 DOSAGE FORM, ONCE A DAY
     Route: 048
     Dates: start: 201902, end: 201903
  6. JANUMET [Suspect]
     Active Substance: METFORMIN HYDROCHLORIDE\SITAGLIPTIN PHOSPHATE
     Indication: DIABETES MELLITUS
     Dosage: 2 DOSAGE FORM, ONCE A DAY
     Route: 048
     Dates: end: 20190320
  7. ALDACTAZINE [Suspect]
     Active Substance: ALTHIAZIDE\SPIRONOLACTONE
     Indication: HYPERTENSION
     Dosage: UNK
     Route: 048
     Dates: end: 20190320
  8. SOLUPRED (PREDNISOLONE) [Suspect]
     Active Substance: PREDNISOLONE
     Indication: BRONCHITIS
     Dosage: UNK
     Route: 048
     Dates: start: 201902, end: 20190320

REACTIONS (4)
  - Hyperkalaemia [Recovered/Resolved]
  - Acute kidney injury [Recovered/Resolved]
  - Lactic acidosis [Recovered/Resolved]
  - Cardio-respiratory arrest [Recovered/Resolved]

NARRATIVE: CASE EVENT DATE: 20190320
